FAERS Safety Report 8309460-7 (Version None)
Quarter: 2012Q2

REPORT INFORMATION
  Report Type: 
  Country: None (occurrence: None)
  Receive Date: 20120424
  Receipt Date: 20120424
  Transmission Date: 20120825
  Serious: Yes (Hospitalization)
  Sender: FDA-Public Use
  Company Number: None

PATIENT
  Age: 62 Year
  Sex: Male
  Weight: 64.8 kg

DRUGS (1)
  1. CEFTRIAXONE [Suspect]
     Indication: URINARY TRACT INFECTION
     Dosage: 1 GM EVERY DAY IV
     Route: 042
     Dates: start: 20120322, end: 20120328

REACTIONS (4)
  - CLOSTRIDIUM DIFFICILE COLITIS [None]
  - MENTAL STATUS CHANGES [None]
  - TACHYCARDIA [None]
  - AGITATION [None]
